FAERS Safety Report 16790281 (Version 1)
Quarter: 2019Q4

REPORT INFORMATION
  Report Type: Spontaneous
  Country: US (occurrence: US)
  Receive Date: 20190909
  Receipt Date: 20190909
  Transmission Date: 20200122
  Serious: Yes (Hospitalization)
  Sender: FDA-Public Use
  Company Number: None

PATIENT
  Sex: Male

DRUGS (3)
  1. HUMIRA [Suspect]
     Active Substance: ADALIMUMAB
     Dosage: ?          OTHER FREQUENCY:EVERY TWO WEEKS;?
     Route: 058
     Dates: start: 20190104
  2. IRON TAB 27MG [Concomitant]
     Dates: start: 20181228
  3. VITAMIN D CAP 50000UNT [Concomitant]
     Dates: start: 20181228

REACTIONS (2)
  - Loss of personal independence in daily activities [None]
  - Condition aggravated [None]
